FAERS Safety Report 5758165-5 (Version None)
Quarter: 2008Q2

REPORT INFORMATION
  Report Type: 
  Country: None (occurrence: None)
  Receive Date: 20080602
  Receipt Date: 20080602
  Transmission Date: 20081010
  Serious: Yes (Other)
  Sender: FDA-Public Use
  Company Number: None

PATIENT
  Age: 53 Year
  Sex: Female
  Weight: 60.782 kg

DRUGS (5)
  1. PROAIR HFA [Suspect]
     Indication: ASTHMA EXERCISE INDUCED
     Dosage: 2 PUFF OTHER/ONE TIME
     Route: 050
     Dates: start: 20080524, end: 20080524
  2. ADVAIR DISKUS 100/50 [Concomitant]
  3. SINGULAIR [Concomitant]
  4. ALLEGRA [Concomitant]
  5. PROTONIX [Concomitant]

REACTIONS (2)
  - AURA [None]
  - VISUAL FIELD DEFECT [None]
